FAERS Safety Report 23282464 (Version 1)
Quarter: 2023Q4

REPORT INFORMATION
  Report Type: Spontaneous
  Country: US (occurrence: US)
  Receive Date: 20231211
  Receipt Date: 20231211
  Transmission Date: 20240110
  Serious: No
  Sender: FDA-Public Use
  Company Number: US-GALDERMA-US2023016925

PATIENT

DRUGS (2)
  1. DIFFERIN GEL [Suspect]
     Active Substance: ADAPALENE
     Indication: Product used for unknown indication
     Dosage: 1 DOSAGE FORM
     Route: 061
  2. DIFFERIN MAX STRENGTH ACNE FOAMING BPO CLEANSER [Suspect]
     Active Substance: BENZOYL PEROXIDE
     Indication: Acne
     Dosage: 1 DOSAGE FORM
     Route: 061
     Dates: start: 20231108, end: 20231109

REACTIONS (6)
  - Skin burning sensation [Recovered/Resolved]
  - Swelling face [Not Recovered/Not Resolved]
  - Dry skin [Not Recovered/Not Resolved]
  - Eye irritation [Recovered/Resolved]
  - Erythema [Not Recovered/Not Resolved]
  - Cough [Recovered/Resolved]

NARRATIVE: CASE EVENT DATE: 20231108
